FAERS Safety Report 4394941-1 (Version None)
Quarter: 2004Q3

REPORT INFORMATION
  Report Type: 
  Country: None (occurrence: None)
  Receive Date: 20040712
  Receipt Date: 20040630
  Transmission Date: 20050211
  Serious: Yes (Disabling)
  Sender: FDA-Public Use
  Company Number: GB-GLAXOSMITHKLINE-B0337418A

PATIENT
  Age: 77 Year
  Sex: Male
  Weight: 80 kg

DRUGS (5)
  1. MALARONE [Suspect]
     Indication: MALARIA PROPHYLAXIS
     Route: 048
     Dates: start: 20040521, end: 20040611
  2. TEMAZEPAM [Concomitant]
     Indication: INSOMNIA
     Dosage: 10MG PER DAY
     Route: 048
     Dates: start: 19960101
  3. TRAZODONE HCL [Concomitant]
     Indication: DEPRESSION
     Dosage: 1TAB PER DAY
     Route: 048
     Dates: start: 20020101, end: 20040501
  4. UROXATRAL [Concomitant]
     Indication: URINARY RETENTION
     Route: 048
  5. LACTULOSE [Concomitant]
     Indication: CONSTIPATION
     Dosage: 10ML PER DAY
     Route: 048
     Dates: start: 20010101

REACTIONS (6)
  - DYSGEUSIA [None]
  - INSOMNIA [None]
  - MALAISE [None]
  - PARAESTHESIA [None]
  - PYREXIA [None]
  - TREMOR [None]
